FAERS Safety Report 4541805-6 (Version None)
Quarter: 2004Q4

REPORT INFORMATION
  Report Type: 
  Country: None (occurrence: None)
  Receive Date: 20041227
  Receipt Date: 20041213
  Transmission Date: 20050328
  Serious: Yes (Other)
  Sender: FDA-Public Use
  Company Number: 2004112680

PATIENT
  Sex: Female

DRUGS (2)
  1. REBOXETINE (REBOXETINE) [Suspect]
     Dosage: 12 MG,  DAILY ORAL
     Route: 048
  2. SERTRALINE HCL [Suspect]
     Dosage: ORAL

REACTIONS (3)
  - INTRACRANIAL PRESSURE INCREASED [None]
  - PAPILLOEDEMA [None]
  - VISUAL DISTURBANCE [None]
